FAERS Safety Report 9784076 (Version 2)
Quarter: 2014Q1

REPORT INFORMATION
  Report Type: Spontaneous
  Country: IT (occurrence: IT)
  Receive Date: 20131226
  Receipt Date: 20140331
  Transmission Date: 20141002
  Serious: Yes (Hospitalization)
  Sender: FDA-Public Use
  Company Number: PHHY2013IT150147

PATIENT
  Sex: Female

DRUGS (1)
  1. CARVEDILOL [Suspect]
     Dosage: 25 MG, QD
     Route: 048
     Dates: start: 20100721, end: 20130721

REACTIONS (3)
  - Dehydration [Recovering/Resolving]
  - Hypotension [Recovering/Resolving]
  - Asthenia [Recovering/Resolving]
